FAERS Safety Report 7916429-0 (Version None)
Quarter: 2011Q4

REPORT INFORMATION
  Report Type: 
  Country: None (occurrence: None)
  Receive Date: 20111116
  Receipt Date: 20111108
  Transmission Date: 20120403
  Serious: No
  Sender: FDA-Public Use
  Company Number: US-BIOGENIDEC-2011BI042777

PATIENT
  Age: 62 Year
  Sex: Male

DRUGS (2)
  1. AVONEX [Suspect]
     Route: 030
     Dates: start: 19980101
  2. AVONEX [Suspect]
     Indication: MULTIPLE SCLEROSIS
     Route: 030
     Dates: start: 20110803

REACTIONS (4)
  - INFLUENZA LIKE ILLNESS [None]
  - HYPERHIDROSIS [None]
  - CHILLS [None]
  - HEADACHE [None]
